FAERS Safety Report 8783984 (Version 1)
Quarter: 2012Q4

REPORT INFORMATION
  Report Type: Report from Study
  Country: US (occurrence: US)
  Receive Date: 20120913
  Receipt Date: 20120913
  Transmission Date: 20130627
  Serious: No
  Sender: FDA-Public Use
  Company Number: US-VERTEX PHARMACEUTICAL INC.-AE-2012-009328

PATIENT
  Sex: Male
  Weight: 55 kg

DRUGS (6)
  1. INCIVEK [Suspect]
     Indication: HEPATITIS C
     Route: 048
     Dates: start: 20120509
  2. PEGASYS [Concomitant]
     Indication: HEPATITIS C
     Route: 058
     Dates: start: 20120509
  3. RIBASPHERE [Concomitant]
     Indication: HEPATITIS C
     Dates: start: 20120509
  4. TUMS E-X [Concomitant]
  5. HYDROXYZINE HCL [Concomitant]
  6. OMEPRAZOLE [Concomitant]

REACTIONS (5)
  - Influenza like illness [Unknown]
  - Malaise [Unknown]
  - Fatigue [Unknown]
  - Rash [Unknown]
  - Frequent bowel movements [Unknown]
